FAERS Safety Report 18304608 (Version 2)
Quarter: 2021Q1

REPORT INFORMATION
  Report Type: Report from Study
  Country: MY (occurrence: MY)
  Receive Date: 20200923
  Receipt Date: 20210316
  Transmission Date: 20210419
  Serious: Yes (Hospitalization, Other)
  Sender: FDA-Public Use
  Company Number: MY-SEATTLE GENETICS-2020SGN04202

PATIENT
  Sex: Female

DRUGS (1)
  1. BRENTUXIMAB VEDOTIN [Suspect]
     Active Substance: BRENTUXIMAB VEDOTIN
     Indication: HODGKIN^S DISEASE REFRACTORY
     Dosage: 100 MILLIGRAM, Q3WEEKS
     Route: 042
     Dates: start: 20200417

REACTIONS (2)
  - Lower respiratory tract infection [Unknown]
  - Platelet count decreased [Unknown]
